FAERS Safety Report 6187698-5 (Version None)
Quarter: 2009Q2

REPORT INFORMATION
  Report Type: 
  Country: None (occurrence: None)
  Receive Date: 20090513
  Receipt Date: 20081125
  Transmission Date: 20091009
  Serious: Yes (Other)
  Sender: FDA-Public Use
  Company Number: US-PFIZER INC-2006138185

PATIENT
  Sex: Female
  Weight: 62.1 kg

DRUGS (18)
  1. CHANTIX [Suspect]
     Indication: EX-TOBACCO USER
     Dosage: 0.5 MG, 2X/DAY
     Dates: start: 20061001
  2. CHANTIX [Suspect]
     Indication: CHRONIC OBSTRUCTIVE PULMONARY DISEASE
  3. SPIRIVA [Interacting]
     Indication: CHRONIC OBSTRUCTIVE PULMONARY DISEASE
  4. ALL OTHER THERAPEUTIC PRODUCTS [Interacting]
  5. XANAX [Concomitant]
     Indication: DEPRESSION
  6. XANAX [Concomitant]
     Indication: ANXIETY
  7. KONSYL [Concomitant]
  8. EFFEXOR [Concomitant]
  9. AMBIEN [Concomitant]
     Dosage: AT BEDTIME
  10. ZETIA [Concomitant]
  11. ALPRAZOLAM [Concomitant]
  12. MONTELUKAST [Concomitant]
  13. PREVACID [Concomitant]
     Indication: GASTROOESOPHAGEAL REFLUX DISEASE
  14. NASONEX [Concomitant]
  15. POLYETHYLENE GLYCOL [Concomitant]
     Indication: CONSTIPATION
  16. ICAPS [Concomitant]
     Indication: CONSTIPATION
  17. ADVAIR DISKUS 100/50 [Concomitant]
     Indication: CHRONIC OBSTRUCTIVE PULMONARY DISEASE
  18. ALBUTEROL [Concomitant]
     Indication: CHRONIC OBSTRUCTIVE PULMONARY DISEASE

REACTIONS (33)
  - ANXIETY [None]
  - BREATH SOUNDS ABNORMAL [None]
  - BRONCHITIS [None]
  - CARDIAC DISORDER [None]
  - CONSTIPATION [None]
  - DRUG INTERACTION [None]
  - DRY EYE [None]
  - FACE INJURY [None]
  - FALL [None]
  - FEELING ABNORMAL [None]
  - FUNGAL INFECTION [None]
  - GAIT DISTURBANCE [None]
  - HYPERSENSITIVITY [None]
  - HYPOTENSION [None]
  - JOINT SWELLING [None]
  - LIP SWELLING [None]
  - LOWER RESPIRATORY TRACT INFECTION [None]
  - MACULAR DEGENERATION [None]
  - MALAISE [None]
  - MUSCLE DISORDER [None]
  - NASAL OEDEMA [None]
  - NAUSEA [None]
  - PAIN [None]
  - PAIN IN EXTREMITY [None]
  - PNEUMONIA PRIMARY ATYPICAL [None]
  - PRODUCTIVE COUGH [None]
  - PULMONARY CONGESTION [None]
  - PYREXIA [None]
  - SELF-INJURIOUS IDEATION [None]
  - SUICIDAL IDEATION [None]
  - TRAUMATIC SHOCK [None]
  - VISUAL IMPAIRMENT [None]
  - WHEEZING [None]
